FAERS Safety Report 7642341-0 (Version None)
Quarter: 2011Q3

REPORT INFORMATION
  Report Type: 
  Country: None (occurrence: None)
  Receive Date: 20110728
  Receipt Date: 20110726
  Transmission Date: 20111222
  Serious: Yes (Hospitalization)
  Sender: FDA-Public Use
  Company Number: US-CEPHALON-2011002143

PATIENT
  Sex: Male
  Weight: 93 kg

DRUGS (6)
  1. TEMAZEPAM [Concomitant]
     Dates: start: 20110509
  2. RITUXIMAB [Suspect]
     Indication: NON-HODGKIN'S LYMPHOMA
     Route: 042
     Dates: start: 20110419
  3. ZOMETA [Concomitant]
     Indication: HYPERCALCAEMIA
  4. OMEPRAZOLE [Concomitant]
     Dates: start: 20091201
  5. HYDROCODONE BITARTRATE AND ACETAMINOPHEN [Concomitant]
     Dates: start: 20110315
  6. TREANDA [Suspect]
     Indication: NON-HODGKIN'S LYMPHOMA
     Route: 041
     Dates: start: 20110419

REACTIONS (1)
  - PLEURAL EFFUSION [None]
